FAERS Safety Report 15800927 (Version 1)
Quarter: 2019Q1

REPORT INFORMATION
  Report Type: Spontaneous
  Country: FR (occurrence: FR)
  Receive Date: 20190109
  Receipt Date: 20190109
  Transmission Date: 20190417
  Serious: Yes (Hospitalization)
  Sender: FDA-Public Use
  Company Number: FR-ZYDUS-023747

PATIENT
  Age: 18 Year
  Sex: Female

DRUGS (4)
  1. TIAPRIDE [Suspect]
     Active Substance: TIAPRIDE
     Indication: MENTAL DISORDER
     Dosage: ()
     Route: 048
     Dates: start: 201705, end: 20170713
  2. PAROXETINE. [Suspect]
     Active Substance: PAROXETINE
     Indication: AFFECTIVE DISORDER
     Route: 048
     Dates: start: 20170714, end: 20170716
  3. RISPERIDONE. [Suspect]
     Active Substance: RISPERIDONE
     Indication: MENTAL DISORDER
     Dosage: 1 MG FILM-COATED TABLET
     Route: 048
     Dates: start: 201705
  4. CYAMEMAZINE [Suspect]
     Active Substance: CYAMEMAZINE
     Indication: MENTAL DISORDER
     Dosage: LE 14/07/17-15/07/2017-16/07/2017
     Route: 048
     Dates: start: 20170714, end: 20170716

REACTIONS (6)
  - Extrapyramidal disorder [Recovered/Resolved with Sequelae]
  - Blister [Unknown]
  - Pyrexia [Recovered/Resolved]
  - Neuroleptic malignant syndrome [Recovered/Resolved with Sequelae]
  - Bladder dilatation [Unknown]
  - Diet refusal [Unknown]

NARRATIVE: CASE EVENT DATE: 2017
